FAERS Safety Report 9474829 (Version 1)
Quarter: 2013Q3

REPORT INFORMATION
  Report Type: Spontaneous
  Country: GB (occurrence: GB)
  Receive Date: 20130823
  Receipt Date: 20130823
  Transmission Date: 20140515
  Serious: Yes (Other)
  Sender: FDA-Public Use
  Company Number: PHHY2013GB089236

PATIENT
  Age: 79 Year
  Sex: Male

DRUGS (4)
  1. PREDNISOLONE [Suspect]
     Indication: PEMPHIGUS
     Dosage: 60 MG, DAILY
  2. MYCOPHENOLATE MOFETIL [Suspect]
     Indication: PEMPHIGUS
     Dosage: 1500 MG, DAILY
  3. FUROSEMIDE [Concomitant]
  4. OMEPRAZOLE [Concomitant]

REACTIONS (1)
  - Rectal haemorrhage [Unknown]
